FAERS Safety Report 8000076-9 (Version None)
Quarter: 2011Q4

REPORT INFORMATION
  Report Type: 
  Country: None (occurrence: None)
  Receive Date: 20111220
  Receipt Date: 20111220
  Transmission Date: 20120403
  Serious: Yes (Other)
  Sender: FDA-Public Use
  Company Number: None

PATIENT
  Age: 91 Year
  Sex: Male
  Weight: 71.6683 kg

DRUGS (1)
  1. AZITHROMYCIN [Suspect]
     Indication: BRONCHITIS
     Dosage: CAPSULE: 2/DAY 1 1 PER DAY 2-5
     Dates: start: 20111003, end: 20111104

REACTIONS (5)
  - ACTIVITIES OF DAILY LIVING IMPAIRED [None]
  - PRODUCT LABEL ISSUE [None]
  - POOR QUALITY SLEEP [None]
  - NAUSEA [None]
  - WEIGHT DECREASED [None]
